FAERS Safety Report 11558704 (Version 1)
Quarter: 2015Q3

REPORT INFORMATION
  Report Type: Other
  Country: JP (occurrence: JP)
  Receive Date: 20150928
  Receipt Date: 20150928
  Transmission Date: 20151125
  Serious: Yes (Hospitalization)
  Sender: FDA-Public Use
  Company Number: JP-LUPIN PHARMACEUTICALS INC.-2015-02632

PATIENT
  Age: 41 Year
  Sex: Female
  Weight: 48.7 kg

DRUGS (10)
  1. MAGNESIUM OXIDE. [Concomitant]
     Active Substance: MAGNESIUM OXIDE
     Indication: CONSTIPATION
     Route: 048
     Dates: start: 20140407, end: 20140505
  2. TSUMURA OPHIOPOGONIS TUBER [Concomitant]
     Indication: COUGH
     Route: 048
     Dates: start: 20140407, end: 20140606
  3. TSUMURA OPHIOPOGONIS TUBER [Concomitant]
     Indication: ASTHMA
  4. SINGULAIR [Concomitant]
     Active Substance: MONTELUKAST SODIUM
     Indication: ASTHMA
  5. DIHYDROCODEINE PHOSPHATE [Concomitant]
     Active Substance: DIHYDROCODEINE PHOSPHATE
     Indication: ASTHMA
  6. SINGULAIR [Concomitant]
     Active Substance: MONTELUKAST SODIUM
     Indication: COUGH
     Route: 048
     Dates: start: 20140407, end: 20140606
  7. DIHYDROCODEINE PHOSPHATE [Concomitant]
     Active Substance: DIHYDROCODEINE PHOSPHATE
     Indication: COUGH
     Route: 048
     Dates: start: 20140407, end: 20140505
  8. OMEPRAZOLE 20MG ^AMEL^ [Suspect]
     Active Substance: OMEPRAZOLE
     Indication: GASTROOESOPHAGEAL REFLUX DISEASE
     Route: 048
     Dates: start: 20140407, end: 20140505
  9. NEXIUM [Concomitant]
     Active Substance: ESOMEPRAZOLE MAGNESIUM
     Indication: GASTROOESOPHAGEAL REFLUX DISEASE
     Route: 048
     Dates: start: 20140508, end: 20140530
  10. MINEBASE [Concomitant]
     Indication: SINUSITIS
     Route: 048
     Dates: start: 20140407, end: 20140621

REACTIONS (6)
  - Renal impairment [Unknown]
  - Tubulointerstitial nephritis [None]
  - Gastrooesophageal reflux disease [None]
  - Chest pain [None]
  - Condition aggravated [None]
  - Dyspnoea [None]

NARRATIVE: CASE EVENT DATE: 20140515
